FAERS Safety Report 6803839-8 (Version None)
Quarter: 2010Q2

REPORT INFORMATION
  Report Type: 
  Country: None (occurrence: None)
  Receive Date: 20100628
  Receipt Date: 20100628
  Transmission Date: 20101027
  Serious: No
  Sender: FDA-Public Use
  Company Number: None

PATIENT
  Age: 36 Year
  Sex: Female
  Weight: 108.8633 kg

DRUGS (2)
  1. LISINOPRIL AND HYDROCHLOROTHIAZIDE [Suspect]
     Indication: HYPERTENSION
     Dosage: 1 TAB DAILY PO
     Route: 048
     Dates: start: 20100211, end: 20100627
  2. LEXAPRO [Suspect]
     Indication: DEPRESSION
     Dosage: 1 TAB DAILY PO
     Route: 048
     Dates: start: 20100224, end: 20100627

REACTIONS (1)
  - COUGH [None]
